FAERS Safety Report 4872231-8 (Version None)
Quarter: 2005Q4

REPORT INFORMATION
  Report Type: 
  Country: None (occurrence: None)
  Receive Date: 20051201
  Receipt Date: 20050727
  Transmission Date: 20060501
  Serious: No
  Sender: FDA-Public Use
  Company Number: 2005PV000764

PATIENT
  Age: 49 Year
  Sex: Female
  Weight: 104.3273 kg

DRUGS (23)
  1. BYETTA [Suspect]
     Indication: DIABETES MELLITUS NON-INSULIN-DEPENDENT
     Dosage: 5 MCG; BID; SC
     Route: 058
     Dates: start: 20050726
  2. GLUCOPHAGE [Concomitant]
  3. HALDOL [Concomitant]
  4. POTASSIUM CHLORIDE [Concomitant]
  5. LOPRESSOR [Concomitant]
  6. PREVACID [Concomitant]
  7. LAMICTAL [Concomitant]
  8. ARTANE [Concomitant]
  9. LIPITOR [Concomitant]
  10. RISPERDAL [Concomitant]
  11. TOPAMAX [Concomitant]
  12. SINEQUAN [Concomitant]
  13. MULTIVITAMIN [Concomitant]
  14. IRON [Concomitant]
  15. DEMADEX [Concomitant]
  16. ASTELIN [Concomitant]
  17. ALBUTEROL SULFATE AUTOHALER [Concomitant]
  18. ATROVENT [Concomitant]
  19. VICODIN [Concomitant]
  20. MOTRIN [Concomitant]
  21. PIPERACILLIN [Concomitant]
  22. VANCOMYCIN [Concomitant]
  23. PHENARGAN [Concomitant]

REACTIONS (5)
  - ABDOMINAL PAIN [None]
  - FLATULENCE [None]
  - NAUSEA [None]
  - STOMACH DISCOMFORT [None]
  - VOMITING [None]
